FAERS Safety Report 9641071 (Version 2)
Quarter: 2013Q4

REPORT INFORMATION
  Report Type: Spontaneous
  Country: CA (occurrence: CA)
  Receive Date: 20131023
  Receipt Date: 20131025
  Transmission Date: 20140711
  Serious: Yes (Other)
  Sender: FDA-Public Use
  Company Number: CA-ROCHE-1291957

PATIENT
  Age: 45 Year
  Sex: Female

DRUGS (9)
  1. XOLAIR [Suspect]
     Indication: ASTHMA
     Route: 058
     Dates: start: 20111003
  2. SINGULAIR [Concomitant]
  3. ALVESCO [Concomitant]
  4. OXEZE [Concomitant]
  5. PREDNISONE [Concomitant]
  6. SALBUTAMOL [Concomitant]
  7. SPIRIVA [Concomitant]
  8. FLUOXETINE [Concomitant]
  9. NALOREX [Concomitant]

REACTIONS (13)
  - Tendon injury [Unknown]
  - Tendon rupture [Recovering/Resolving]
  - Influenza [Unknown]
  - Abasia [Unknown]
  - Labyrinthitis [Unknown]
  - Tremor [Unknown]
  - Dyspnoea [Unknown]
  - Increased upper airway secretion [Recovering/Resolving]
  - Musculoskeletal pain [Unknown]
  - Oropharyngeal pain [Unknown]
  - Fatigue [Unknown]
  - Cough [Unknown]
  - Tendonitis [Recovering/Resolving]
